FAERS Safety Report 7470795-1 (Version None)
Quarter: 2011Q2

REPORT INFORMATION
  Report Type: 
  Country: None (occurrence: None)
  Receive Date: 20110510
  Receipt Date: 20110506
  Transmission Date: 20111010
  Serious: No
  Sender: FDA-Public Use
  Company Number: US-TEVA-280619USA

PATIENT
  Sex: Female

DRUGS (3)
  1. JANUMET [Concomitant]
     Indication: DIABETES MELLITUS
  2. ESOMEPRAZOLE MAGNESIUM [Concomitant]
  3. AZILECT [Suspect]
     Indication: PARKINSON'S DISEASE
     Dosage: DAILY
     Route: 048
     Dates: start: 20110405

REACTIONS (1)
  - DIARRHOEA [None]
